FAERS Safety Report 8402585-7 (Version None)
Quarter: 2012Q2

REPORT INFORMATION
  Report Type: 
  Country: None (occurrence: None)
  Receive Date: 20120601
  Receipt Date: 20120529
  Transmission Date: 20120825
  Serious: Yes (Hospitalization, Other)
  Sender: FDA-Public Use
  Company Number: PHEH2012US010973

PATIENT
  Sex: Female

DRUGS (1)
  1. TASIGNA [Suspect]
     Route: 048

REACTIONS (2)
  - HAEMORRHAGE [None]
  - NEOPLASM PROGRESSION [None]
